FAERS Safety Report 7676440-4 (Version None)
Quarter: 2011Q3

REPORT INFORMATION
  Report Type: 
  Country: None (occurrence: None)
  Receive Date: 20110809
  Receipt Date: 20110809
  Transmission Date: 20111222
  Serious: Yes (Life-Threatening)
  Sender: FDA-Public Use
  Company Number: None

PATIENT
  Sex: Female
  Weight: 72.5755 kg

DRUGS (1)
  1. ABILIFY [Suspect]
     Indication: MENTAL DISORDER
     Dosage: 1 DAILY I THINK
     Dates: start: 20101201, end: 20110101

REACTIONS (2)
  - DYSPNOEA [None]
  - FEELING ABNORMAL [None]
